FAERS Safety Report 6097943-2 (Version None)
Quarter: 2009Q1

REPORT INFORMATION
  Report Type: 
  Country: None (occurrence: None)
  Receive Date: 20090227
  Receipt Date: 20090225
  Transmission Date: 20090719
  Serious: Yes (Hospitalization, Other)
  Sender: FDA-Public Use
  Company Number: US-ABBOTT-09P-163-0496668-00

PATIENT
  Sex: Female
  Weight: 44.946 kg

DRUGS (3)
  1. HUMIRA [Suspect]
     Indication: CROHN'S DISEASE
     Route: 058
     Dates: start: 20071001
  2. PREDNISONE [Suspect]
     Indication: PSORIATIC ARTHROPATHY
     Dates: end: 20080101
  3. IRON [Concomitant]
     Indication: DRUG USE FOR UNKNOWN INDICATION
     Route: 048

REACTIONS (9)
  - ARTHROPATHY [None]
  - BLOOD COUNT ABNORMAL [None]
  - CALCINOSIS [None]
  - EXTRASKELETAL OSSIFICATION [None]
  - GROIN PAIN [None]
  - HAEMATOCHEZIA [None]
  - MOBILITY DECREASED [None]
  - OSTEOARTHRITIS [None]
  - OSTEONECROSIS [None]
